FAERS Safety Report 12793760 (Version 1)
Quarter: 2016Q3

REPORT INFORMATION
  Report Type: Spontaneous
  Country: US (occurrence: US)
  Receive Date: 20160929
  Receipt Date: 20160929
  Transmission Date: 20161109
  Serious: No
  Sender: FDA-Public Use
  Company Number: US-JAZZ-2016-US-011747

PATIENT
  Age: 25 Year
  Sex: Female

DRUGS (21)
  1. MULTIVITAMIN [Concomitant]
     Active Substance: VITAMINS
  2. DESONIDE. [Concomitant]
     Active Substance: DESONIDE
  3. TYLENOL EXTRA STRENGTH [Concomitant]
     Active Substance: ACETAMINOPHEN
  4. HALOBETASOL PROP [Concomitant]
  5. ESCITALOPRAM [Concomitant]
     Active Substance: ESCITALOPRAM OXALATE
  6. METHYLPHENIDATE. [Concomitant]
     Active Substance: METHYLPHENIDATE
  7. VITAMIN D3 [Concomitant]
     Active Substance: CHOLECALCIFEROL
  8. XYREM [Suspect]
     Active Substance: SODIUM OXYBATE
     Dosage: 3.75 G, BID
     Route: 048
     Dates: start: 201606
  9. RITALIN [Concomitant]
     Active Substance: METHYLPHENIDATE HYDROCHLORIDE
     Indication: SOMNOLENCE
  10. CALCIUM [Concomitant]
     Active Substance: CALCIUM
  11. MULTIVITAMINS [Concomitant]
     Active Substance: VITAMINS
  12. XYREM [Suspect]
     Active Substance: SODIUM OXYBATE
     Indication: CATAPLEXY
     Dosage: 3 G, BID
     Route: 048
     Dates: start: 201606, end: 201606
  13. VITAMIN D [Concomitant]
     Active Substance: CHOLECALCIFEROL
  14. CORTISONE [Concomitant]
     Active Substance: CORTISONE\HYDROCORTISONE
  15. XYREM [Suspect]
     Active Substance: SODIUM OXYBATE
     Indication: NARCOLEPSY
     Dosage: 2.25 G, BID
     Route: 048
     Dates: start: 20160602, end: 201606
  16. LEXAPRO [Concomitant]
     Active Substance: ESCITALOPRAM OXALATE
     Indication: ANXIETY
  17. ZYRTEC [Concomitant]
     Active Substance: CETIRIZINE HYDROCHLORIDE
     Indication: HYPERSENSITIVITY
  18. CETIRIZINE HCL [Concomitant]
     Active Substance: CETIRIZINE HYDROCHLORIDE
  19. LEXAPRO [Concomitant]
     Active Substance: ESCITALOPRAM OXALATE
     Indication: DEPRESSION
  20. IBUPROFEN. [Concomitant]
     Active Substance: IBUPROFEN
  21. CALCIUM +D [Concomitant]
     Active Substance: CALCIUM\VITAMIN D

REACTIONS (2)
  - Dizziness [Not Recovered/Not Resolved]
  - Panic attack [Not Recovered/Not Resolved]

NARRATIVE: CASE EVENT DATE: 20160604
